FAERS Safety Report 6820807-0 (Version None)
Quarter: 2010Q3

REPORT INFORMATION
  Report Type: 
  Country: None (occurrence: None)
  Receive Date: 20100707
  Receipt Date: 20070530
  Transmission Date: 20110219
  Serious: No
  Sender: FDA-Public Use
  Company Number: US-PFIZER INC-2007014073

PATIENT
  Sex: Male
  Weight: 68.04 kg

DRUGS (8)
  1. ZOLOFT [Suspect]
     Indication: DEPRESSION
     Dates: start: 20061201
  2. ZOLOFT [Suspect]
  3. REMICADE [Concomitant]
     Indication: ANAEMIA
     Dosage: 1 EVERY 2 WEEKS
  4. MERCAPTOPURINE [Concomitant]
  5. LOPERAMIDE HYDROCHLORIDE [Concomitant]
  6. PREDNISONE [Concomitant]
     Dates: end: 20061201
  7. IRON [Concomitant]
     Route: 048
  8. IRON [Concomitant]
     Route: 042

REACTIONS (2)
  - ANAEMIA [None]
  - NIGHT SWEATS [None]
